FAERS Safety Report 4364637-0 (Version None)
Quarter: 2004Q2

REPORT INFORMATION
  Report Type: 
  Country: None (occurrence: None)
  Receive Date: 20040521
  Receipt Date: 20040510
  Transmission Date: 20050107
  Serious: Yes (Other)
  Sender: FDA-Public Use
  Company Number: HQWYE822311MAY04

PATIENT
  Age: 78 Year
  Sex: Female
  Weight: 63.56 kg

DRUGS (5)
  1. CORDARONE [Suspect]
     Indication: CARDIAC DISORDER
  2. CORDARONE [Suspect]
     Indication: CARDIAC DISORDER
     Dosage: INTRAVENOUS
     Route: 042
  3. ZOCOR (SINVASTATIN) [Concomitant]
  4. ZOLOFT [Concomitant]
  5. ACE INHIBITOR NOS [Concomitant]

REACTIONS (5)
  - BODY MASS INDEX DECREASED [None]
  - LUNG INFILTRATION [None]
  - MUSCULAR WEAKNESS [None]
  - PNEUMONIA [None]
  - WEIGHT DECREASED [None]
